FAERS Safety Report 11296900 (Version 1)
Quarter: 2015Q3

REPORT INFORMATION
  Report Type: Spontaneous
  Country: US (occurrence: US)
  Receive Date: 20150722
  Receipt Date: 20150722
  Transmission Date: 20151125
  Serious: No
  Sender: FDA-Public Use
  Company Number: US-ELI_LILLY_AND_COMPANY-US201007002809

PATIENT
  Sex: Female

DRUGS (6)
  1. FOLIC ACID. [Concomitant]
     Active Substance: FOLIC ACID
  2. CALCIUM [Concomitant]
     Active Substance: CALCIUM
  3. OXYGEN. [Concomitant]
     Active Substance: OXYGEN
  4. VITAMIN B12 [Concomitant]
     Active Substance: CYANOCOBALAMIN
     Dosage: UNK, 2/M
  5. EVISTA [Suspect]
     Active Substance: RALOXIFENE HYDROCHLORIDE
     Indication: OSTEOPOROSIS
     Dosage: 60 MG, DAILY (1/D)
  6. VITAMIN D [Concomitant]
     Active Substance: CHOLECALCIFEROL

REACTIONS (7)
  - Haemoptysis [Recovered/Resolved]
  - Asthenia [Unknown]
  - Dizziness [Unknown]
  - Cough [Unknown]
  - Decreased appetite [Unknown]
  - Lung disorder [Unknown]
  - Chest pain [Unknown]
